FAERS Safety Report 24145572 (Version 1)
Quarter: 2024Q3

REPORT INFORMATION
  Report Type: Report from Study
  Country: IE (occurrence: IE)
  Receive Date: 20240729
  Receipt Date: 20240729
  Transmission Date: 20241016
  Serious: Yes (Hospitalization)
  Sender: NOVARTIS
  Company Number: IE-002147023-NVSC2024IE153201

PATIENT
  Age: 40 Year
  Sex: Female

DRUGS (1)
  1. COSENTYX [Suspect]
     Active Substance: SECUKINUMAB
     Indication: Psoriasis
     Dosage: 300 MG, QMO
     Route: 065
     Dates: start: 20210625

REACTIONS (1)
  - Epstein-Barr virus infection [Not Recovered/Not Resolved]

NARRATIVE: CASE EVENT DATE: 20240718
